FAERS Safety Report 4805223-5 (Version None)
Quarter: 2005Q4

REPORT INFORMATION
  Report Type: 
  Country: None (occurrence: None)
  Receive Date: 20051018
  Receipt Date: 20051010
  Transmission Date: 20060501
  Serious: Yes (Hospitalization)
  Sender: FDA-Public Use
  Company Number: DEWYE040710OCT05

PATIENT
  Age: 46 Year
  Sex: Male

DRUGS (3)
  1. RAPAMUNE [Suspect]
     Indication: PROPHYLAXIS AGAINST TRANSPLANT REJECTION
     Route: 048
     Dates: start: 20050714
  2. CORTICOSTEROID NOS (CORTICOSTEROID NOS, , 0) [Suspect]
     Indication: PROPHYLAXIS AGAINST TRANSPLANT REJECTION
     Route: 048
     Dates: start: 20050714
  3. TACROLIMUS (TACROLIMUS, ,0) [Suspect]
     Indication: PROPHYLAXIS AGAINST TRANSPLANT REJECTION
     Dosage: 10 MG
     Route: 048
     Dates: start: 20050714

REACTIONS (3)
  - AMPUTATION [None]
  - ORCHITIS NONINFECTIVE [None]
  - TESTICULAR NECROSIS [None]
